FAERS Safety Report 8600913-0 (Version None)
Quarter: 2012Q2

REPORT INFORMATION
  Report Type: 
  Country: None (occurrence: None)
  Receive Date: 20120423
  Receipt Date: 20091123
  Transmission Date: 20120825
  Serious: Yes (Other)
  Sender: FDA-Public Use
  Company Number: PHEH2009US16577

PATIENT
  Age: 79 Year
  Sex: Female

DRUGS (3)
  1. FISH OIL (FISH OIL) [Concomitant]
  2. ASPIRIN [Concomitant]
  3. FEMARA [Suspect]

REACTIONS (9)
  - WEIGHT DECREASED [None]
  - PALPITATIONS [None]
  - MYALGIA [None]
  - DECREASED APPETITE [None]
  - FATIGUE [None]
  - NAUSEA [None]
  - CARDIAC PACEMAKER INSERTION [None]
  - MIGRAINE [None]
  - ABASIA [None]
